FAERS Safety Report 4743044-2 (Version None)
Quarter: 2005Q3

REPORT INFORMATION
  Report Type: 
  Country: None (occurrence: None)
  Receive Date: 20050811
  Receipt Date: 20050801
  Transmission Date: 20060218
  Serious: Yes (Other)
  Sender: FDA-Public Use
  Company Number: 2005092960

PATIENT
  Age: 73 Year
  Sex: Female
  Weight: 55.7924 kg

DRUGS (13)
  1. BEXTRA [Suspect]
     Indication: ARTHRITIS
     Dosage: 20 MG (20 MG, 1 IN 1 D), ORAL
     Route: 048
     Dates: start: 20040501
  2. REMICADE [Suspect]
     Indication: CROHN'S DISEASE
     Dosage: 300 MG (300 MG, 1 IN 2 M), INTRAVENOUS
     Route: 042
     Dates: start: 20030901, end: 20050101
  3. MAGNESIUM (MAGNESIUM) [Concomitant]
  4. POTASSIUM CHLORIDE [Concomitant]
  5. CALCIUM (CALCIUM) [Concomitant]
  6. VITAMIN B12 [Concomitant]
  7. ELAVIL [Concomitant]
  8. EVISTA [Concomitant]
  9. ALL OTHER THERAPEUTIC PRODUCTS (ALL OTHER THERAPEUTIC PRODUCTS) [Concomitant]
  10. VIOXX [Concomitant]
  11. MIACALCIN [Concomitant]
  12. TYLENOL W/CODEINE NO. 3 (COEDINE PHOSPHATE, PARACETAMOL) [Concomitant]
  13. KCL (POTASSIUM CHLORIDE) [Concomitant]

REACTIONS (4)
  - BODY TEMPERATURE INCREASED [None]
  - BREAST CANCER [None]
  - LUPUS-LIKE SYNDROME [None]
  - RASH PUSTULAR [None]
